FAERS Safety Report 4926745-2 (Version None)
Quarter: 2006Q1

REPORT INFORMATION
  Report Type: 
  Country: None (occurrence: None)
  Receive Date: 20060228
  Receipt Date: 20050608
  Transmission Date: 20060701
  Serious: Yes (Other)
  Sender: FDA-Public Use
  Company Number: US-GLAXOSMITHKLINE-A0561823A

PATIENT
  Age: 45 Year
  Sex: Female
  Weight: 79.5 kg

DRUGS (7)
  1. LAMICTAL [Suspect]
     Indication: DRUG USE FOR UNKNOWN INDICATION
     Route: 048
     Dates: start: 20050525, end: 20050608
  2. NEURONTIN [Suspect]
     Indication: DRUG USE FOR UNKNOWN INDICATION
     Dosage: 600MG PER DAY
     Dates: start: 20050301, end: 20050608
  3. LEXAPRO [Concomitant]
     Dosage: 10MG PER DAY
     Route: 048
  4. SEROQUEL [Concomitant]
     Dosage: 300MG PER DAY
     Route: 048
  5. TENORMIN [Concomitant]
     Dosage: 100MG PER DAY
     Route: 048
  6. PREVACID [Concomitant]
     Dosage: 30MG PER DAY
     Route: 048
  7. ADVAIR DISKUS 100/50 [Concomitant]
     Indication: ASTHMA

REACTIONS (1)
  - RASH MACULO-PAPULAR [None]
